FAERS Safety Report 8351164-9 (Version None)
Quarter: 2012Q2

REPORT INFORMATION
  Report Type: 
  Country: None (occurrence: None)
  Receive Date: 20120510
  Receipt Date: 20120507
  Transmission Date: 20120825
  Serious: Yes (Other)
  Sender: FDA-Public Use
  Company Number: US-PFIZER INC-2012085387

PATIENT
  Sex: Female
  Weight: 62.585 kg

DRUGS (8)
  1. DETROL LA [Suspect]
     Indication: BLADDER DISORDER
  2. ZETIA [Concomitant]
     Indication: HYPERTENSION
     Dosage: 10 MG, DAILY
  3. TRICOR [Concomitant]
     Dosage: 145 MG, DAILY
  4. GLYBURIDE [Concomitant]
     Indication: DIABETES MELLITUS
     Dosage: 5 MG, 4X/DAY
  5. METFORMIN HCL [Concomitant]
     Indication: DIABETES MELLITUS
     Dosage: 500 MG, DAILY
  6. ATACAND [Concomitant]
     Indication: HYPERTENSION
     Dosage: 16 MG, DAILY
  7. DETROL LA [Suspect]
     Indication: CYSTITIS
     Dosage: 4 MG, DAILY
     Dates: start: 20120401
  8. VITAMIN B COMPLEX CAP [Concomitant]
     Indication: VITAMIN SUPPLEMENTATION
     Dosage: 1000 IU, 4X/DAY

REACTIONS (3)
  - BLOOD GLUCOSE INCREASED [None]
  - VISION BLURRED [None]
  - DRY MOUTH [None]
